FAERS Safety Report 7308267-7 (Version None)
Quarter: 2011Q1

REPORT INFORMATION
  Report Type: 
  Country: None (occurrence: None)
  Receive Date: 20110223
  Receipt Date: 20110216
  Transmission Date: 20110831
  Serious: Yes (Hospitalization)
  Sender: FDA-Public Use
  Company Number: A0890418A

PATIENT
  Sex: Male

DRUGS (1)
  1. LAMICTAL [Suspect]
     Indication: AFFECTIVE DISORDER
     Dosage: 100MG UNKNOWN
     Route: 065
     Dates: start: 20030603

REACTIONS (5)
  - GRANDIOSITY [None]
  - PERSONALITY CHANGE [None]
  - CONFUSIONAL STATE [None]
  - THINKING ABNORMAL [None]
  - MANIA [None]
